FAERS Safety Report 10390054 (Version 3)
Quarter: 2014Q3

REPORT INFORMATION
  Report Type: Spontaneous
  Country: JP (occurrence: JP)
  Receive Date: 20140818
  Receipt Date: 20140915
  Transmission Date: 20150326
  Serious: Yes (Other)
  Sender: FDA-Public Use
  Company Number: JP-PFIZER INC-2014229301

PATIENT
  Age: 80 Year
  Sex: Male

DRUGS (3)
  1. CELECOX [Suspect]
     Active Substance: CELECOXIB
     Dosage: 400 MG, 1X/DAY
     Route: 048
     Dates: start: 20140701, end: 20140727
  2. GLACTIV [Suspect]
     Active Substance: SITAGLIPTIN
     Dosage: UNK
     Route: 048
  3. CELECOX [Suspect]
     Active Substance: CELECOXIB
     Indication: PAIN MANAGEMENT
     Dosage: 200 MG, 1X/DAY
     Route: 048
     Dates: start: 20140313, end: 20140630

REACTIONS (2)
  - Back pain [Unknown]
  - Renal impairment [Not Recovered/Not Resolved]

NARRATIVE: CASE EVENT DATE: 20140723
